FAERS Safety Report 7621566-4 (Version None)
Quarter: 2011Q3

REPORT INFORMATION
  Report Type: 
  Country: None (occurrence: None)
  Receive Date: 20110719
  Receipt Date: 20110713
  Transmission Date: 20111222
  Serious: Yes (Other)
  Sender: FDA-Public Use
  Company Number: US-BAYER-2011-061760

PATIENT
  Age: 83 Year
  Sex: Female
  Weight: 81.633 kg

DRUGS (11)
  1. JANUVIA [Concomitant]
  2. LISINOPRIL [Concomitant]
  3. MULTI-VITAMINS [Suspect]
     Dosage: COUNT SIZE 100S
     Route: 048
  4. ASPIRIN [Concomitant]
  5. MELOXICAM [Concomitant]
  6. CARVEDILOL [Concomitant]
  7. PREDNISONE [Concomitant]
  8. POTASSIUM [Concomitant]
  9. LASIX [Concomitant]
  10. NU-IRON [Concomitant]
  11. LOVASTATIN [Concomitant]

REACTIONS (1)
  - CHOKING [None]
